FAERS Safety Report 6286098-7 (Version None)
Quarter: 2009Q3

REPORT INFORMATION
  Report Type: 
  Country: None (occurrence: None)
  Receive Date: 20090728
  Receipt Date: 20090721
  Transmission Date: 20100115
  Serious: Yes (Other)
  Sender: FDA-Public Use
  Company Number: US-B.I. PHARMACEUTICALS,INC./RIDGEFIELD-2009-DE-05008GD

PATIENT
  Age: 53 Year
  Sex: Male

DRUGS (4)
  1. CLONIDINE [Suspect]
     Indication: NERVE BLOCK
     Dosage: 100 MCG
  2. BUPIVACAINE [Suspect]
     Indication: NERVE BLOCK
     Dosage: 0.5 % (30 ML)
  3. PHENYTOIN [Concomitant]
     Indication: CONVULSION
  4. PHENYTOIN [Concomitant]
     Indication: COMPLEX PARTIAL SEIZURES

REACTIONS (1)
  - CONVULSION [None]
